FAERS Safety Report 7993528-9 (Version None)
Quarter: 2011Q4

REPORT INFORMATION
  Report Type: 
  Country: None (occurrence: None)
  Receive Date: 20111219
  Receipt Date: 20111206
  Transmission Date: 20120403
  Serious: No
  Sender: FDA-Public Use
  Company Number: FR-GILEAD-2011-0046015

PATIENT

DRUGS (1)
  1. VIREAD [Suspect]
     Indication: HEPATITIS B
     Route: 064

REACTIONS (1)
  - NO ADVERSE EVENT [None]
